FAERS Safety Report 13508730 (Version 1)
Quarter: 2017Q2

REPORT INFORMATION
  Report Type: Spontaneous
  Country: US (occurrence: US)
  Receive Date: 20170503
  Receipt Date: 20170503
  Transmission Date: 20170830
  Serious: No
  Sender: FDA-Public Use
  Company Number: US-ASTRAZENECA-2016SF21843

PATIENT
  Age: 1523 Week
  Sex: Female
  Weight: 98 kg

DRUGS (7)
  1. BYDUREON [Suspect]
     Active Substance: EXENATIDE
     Indication: GLUCOSE TOLERANCE IMPAIRED
     Route: 058
     Dates: start: 20161112
  2. LAMICTAL [Concomitant]
     Active Substance: LAMOTRIGINE
     Indication: MOOD ALTERED
     Route: 048
  3. ALTACTONE [Concomitant]
     Indication: POLYCYSTIC OVARIES
     Route: 048
  4. XAXAX [Concomitant]
     Indication: ANXIETY
     Dosage: 0.25 MG, AS NEEDED UP TO 4 TIMES A DAY
     Route: 048
  5. DROSPIRENONE [Concomitant]
     Active Substance: DROSPIRENONE
     Indication: POLYCYSTIC OVARIES
     Dosage: DAILY
     Route: 048
  6. SYNTHROID [Concomitant]
     Active Substance: LEVOTHYROXINE SODIUM
     Indication: HYPOTHYROIDISM
     Route: 048
  7. METFORMIN [Concomitant]
     Active Substance: METFORMIN HYDROCHLORIDE
     Indication: GLUCOSE TOLERANCE IMPAIRED

REACTIONS (1)
  - Injection site extravasation [Recovered/Resolved]

NARRATIVE: CASE EVENT DATE: 20161112
